FAERS Safety Report 5820642-6 (Version None)
Quarter: 2008Q3

REPORT INFORMATION
  Report Type: 
  Country: None (occurrence: None)
  Receive Date: 20080724
  Receipt Date: 20071227
  Transmission Date: 20090109
  Serious: No
  Sender: FDA-Public Use
  Company Number: A0700586A

PATIENT
  Age: 45 Year
  Sex: Female

DRUGS (7)
  1. AVANDIA [Suspect]
     Dosage: 2MG PER DAY
     Route: 048
     Dates: start: 20070601
  2. TYKERB [Suspect]
     Indication: BREAST CANCER
     Dosage: 5TAB PER DAY
     Route: 048
     Dates: start: 20070501
  3. XELODA [Concomitant]
  4. DIABETES MEDICATION [Concomitant]
  5. GLIPIZIDE [Concomitant]
  6. METFORMIN [Concomitant]
  7. PREDNISONE TAB [Concomitant]

REACTIONS (1)
  - DYSPEPSIA [None]
